FAERS Safety Report 16270498 (Version 1)
Quarter: 2019Q2

REPORT INFORMATION
  Report Type: Spontaneous
  Country: GB (occurrence: GB)
  Receive Date: 20190503
  Receipt Date: 20190503
  Transmission Date: 20190711
  Serious: Yes (Hospitalization)
  Sender: FDA-Public Use
  Company Number: GB-PFIZER INC-2019182978

PATIENT
  Age: 86 Year
  Sex: Female

DRUGS (17)
  1. CASSIA SENNA [Concomitant]
     Active Substance: HERBALS\SENNOSIDES
     Dosage: 15 MG, 1X/DAY (NIGHT)
     Route: 048
  2. APIXABAN [Concomitant]
     Active Substance: APIXABAN
     Dosage: 10 MG, 1X/DAY (TO BE CONTINUED FOR 6 WEEKS)
     Route: 048
  3. FOSTAIR [Concomitant]
     Active Substance: BECLOMETHASONE\FORMOTEROL
     Dosage: 4 DF, 1X/DAY (100MICROGRAMS/DOSE / 6MICROGRAMS/DOSE)
     Route: 055
  4. MOMETASONE [Concomitant]
     Active Substance: MOMETASONE
     Dosage: 2 DF, 1X/DAY (MORNING. 50MICROGRAMS/DOSE)
     Route: 045
  5. PARACETAMOL [Concomitant]
     Active Substance: ACETAMINOPHEN
     Dosage: UNK, AS NEEDED (500MG - 1G FOUR TIMES DAILY)
     Route: 048
  6. LEVOTHYROXINE. [Concomitant]
     Active Substance: LEVOTHYROXINE
     Dosage: 150 UG, 1X/DAY
     Route: 048
  7. MUCOPOLYSACCHARIDE POLYSULFURIC ACID ESTER [Concomitant]
     Dosage: 4 DF, 1X/DAY
     Route: 061
  8. ZOPICLONE [Concomitant]
     Active Substance: ZOPICLONE
     Dosage: 7.5 MG, 1X/DAY (NIGHT, TAKES REGULARLY)
     Route: 048
  9. IBUPROFEN. [Suspect]
     Active Substance: IBUPROFEN
     Dosage: 400 MG, TWICE DAILY TO THREE TIMES DAILY
  10. SALBUTAMOL [Concomitant]
     Active Substance: ALBUTEROL
     Dosage: 1-2 PUFFS FOUR TIMES DAILY
     Route: 055
  11. SALICYLIC ACID. [Concomitant]
     Active Substance: SALICYLIC ACID
     Dosage: 4 DF, 1X/DAY (SALICYLIC ACID + MUCOPOLYSACCHARIDE POLYSULFATE)
     Route: 061
  12. CALCIUM PHOSPHATE/COLECALCIFEROL [Concomitant]
     Dosage: 2 DF, 1X/DAY
     Route: 048
  13. OMEPRAZOLE. [Concomitant]
     Active Substance: OMEPRAZOLE
     Dosage: 20 MG, 1X/DAY (INCREASED TO TWICE DAILY FOR 6 WEEKS)
     Route: 048
  14. DIFLUCORTOLONE [Concomitant]
     Active Substance: DIFLUCORTOLONE
     Dosage: UNK, AS NEEDED
     Route: 061
  15. ATENOLOL. [Concomitant]
     Active Substance: ATENOLOL
     Indication: BRADYCARDIA
     Dosage: 50 MG, 1X/DAY (MORNING. WITHDRAWN)
     Route: 048
  16. DOCUSATE [Concomitant]
     Active Substance: DOCUSATE
     Dosage: UNK, AS NEEDED (200MG TWICE DAILY)
     Route: 048
  17. ATORVASTATIN [Concomitant]
     Active Substance: ATORVASTATIN
     Dosage: 40 MG, 1X/DAY (NIGHT)
     Route: 048

REACTIONS (2)
  - Gastric ulcer [Recovering/Resolving]
  - Gastritis [Recovering/Resolving]

NARRATIVE: CASE EVENT DATE: 20181215
